FAERS Safety Report 6773030-2 (Version None)
Quarter: 2010Q2

REPORT INFORMATION
  Report Type: 
  Country: None (occurrence: None)
  Receive Date: 20100614
  Receipt Date: 20100602
  Transmission Date: 20101027
  Serious: Yes (Other)
  Sender: FDA-Public Use
  Company Number: 7001295

PATIENT
  Age: 47 Year
  Sex: Female
  Weight: 62 kg

DRUGS (10)
  1. REBIF [Suspect]
     Indication: MULTIPLE SCLEROSIS
     Dosage: 44 MCG, 3 IN 1 WK, SUBCUTANEOUS
     Route: 058
     Dates: start: 20020101
  2. ENABLEX [Concomitant]
  3. LOVAZA (CHOLESTEROL - AND TRIGLYCERIDE REDUCERS) [Concomitant]
  4. NIASPAN [Concomitant]
  5. ASPIRIN (COLSPRIN) [Concomitant]
  6. CALCIUM (CALCIUM) [Concomitant]
  7. MAGNESIUM (MAGNESIUM ASPARTATE) [Concomitant]
  8. VITAMIN SUPPLEMENTS (VITAMINS) [Concomitant]
  9. VOLTAREN [Concomitant]
  10. GNC WOMEN'S HAIR, SKIN AND NAIL PROGRAM (ALL OTHER THERAPEUTIC PRODUCT [Concomitant]

REACTIONS (9)
  - ALOPECIA [None]
  - ANAEMIA [None]
  - DYSPEPSIA [None]
  - INFLUENZA LIKE ILLNESS [None]
  - INJECTION SITE NECROSIS [None]
  - NEUROPATHY PERIPHERAL [None]
  - OPTIC NEURITIS [None]
  - PYREXIA [None]
  - TRIGEMINAL NEURALGIA [None]
